FAERS Safety Report 16258292 (Version 3)
Quarter: 2022Q3

REPORT INFORMATION
  Report Type: Spontaneous
  Country: US (occurrence: US)
  Receive Date: 20190430
  Receipt Date: 20220706
  Transmission Date: 20221027
  Serious: Yes (Other)
  Sender: FDA-Public Use
  Company Number: US-TAKEDA-2018TUS014253

PATIENT
  Age: 61 Year
  Sex: Female

DRUGS (70)
  1. PREVACID [Suspect]
     Active Substance: LANSOPRAZOLE
     Dosage: UNK
     Route: 048
  2. PROTONIX [Suspect]
     Active Substance: PANTOPRAZOLE SODIUM
     Dosage: UNK
     Route: 048
  3. PANTOPRAZOLE [Suspect]
     Active Substance: PANTOPRAZOLE
     Indication: Gastrooesophageal reflux disease
     Dosage: 40 MG, 1X/DAY
     Dates: start: 202201, end: 202203
  4. NEXIUM [Suspect]
     Active Substance: ESOMEPRAZOLE MAGNESIUM
     Indication: Gastrooesophageal reflux disease
     Dosage: 40 MG, 2X/DAY
     Route: 048
     Dates: start: 2007, end: 2014
  5. DEXILANT [Suspect]
     Active Substance: DEXLANSOPRAZOLE
     Indication: Gastrooesophageal reflux disease
     Dosage: 40 MILLIGRAM
     Route: 048
     Dates: start: 2007, end: 2014
  6. DEXILANT [Suspect]
     Active Substance: DEXLANSOPRAZOLE
     Dosage: 60 MG, 2X/DAY
     Route: 048
     Dates: start: 2011
  7. PRILOSEC [Suspect]
     Active Substance: OMEPRAZOLE MAGNESIUM
     Dosage: UNK
     Route: 048
  8. COENZYME Q10 [Concomitant]
     Active Substance: DIETARY SUPPLEMENT\UBIDECARENONE
     Indication: Muscle spasms
     Dosage: UNK
  9. COENZYME Q10 [Concomitant]
     Active Substance: DIETARY SUPPLEMENT\UBIDECARENONE
     Indication: Cardiovascular event prophylaxis
  10. CALCIUM\VITAMIN D [Concomitant]
     Active Substance: CALCIUM\VITAMIN D
     Indication: Bone disorder
     Dosage: UNK
  11. GLUCOSAMINE [Concomitant]
     Active Substance: GLUCOSAMINE
     Indication: Arthropathy
     Dosage: UNK
     Dates: start: 2000, end: 2013
  12. VITAMIN C [Concomitant]
     Active Substance: ASCORBIC ACID
     Indication: Nasopharyngitis
     Dosage: UNK
     Dates: start: 2018, end: 2022
  13. VITAMIN C [Concomitant]
     Active Substance: ASCORBIC ACID
     Indication: Antiviral prophylaxis
  14. GINGER AND GINGER ROOT [Concomitant]
     Indication: Motion sickness
     Dosage: UNK
  15. GINGER AND GINGER ROOT [Concomitant]
     Indication: Routine health maintenance
  16. ASPIRIN [Concomitant]
     Active Substance: ASPIRIN
     Indication: Pain
     Dosage: UNK
     Dates: end: 202203
  17. ASPIRIN [Concomitant]
     Active Substance: ASPIRIN
     Indication: Pyrexia
     Dosage: 81 MG
  18. ASPIRIN [Concomitant]
     Active Substance: ASPIRIN
     Indication: Headache
  19. ASPIRIN [Concomitant]
     Active Substance: ASPIRIN
     Indication: Inflammation
  20. ASPIRIN [Concomitant]
     Active Substance: ASPIRIN
     Indication: Cardiovascular event prophylaxis
  21. ASPIRIN [Concomitant]
     Active Substance: ASPIRIN
     Indication: Ischaemic heart disease prophylaxis
  22. LORATADINE [Concomitant]
     Active Substance: LORATADINE
     Indication: Seasonal allergy
     Dosage: UNK
     Dates: end: 2020
  23. PRASTERONE [Concomitant]
     Active Substance: PRASTERONE
     Indication: Hormone therapy
     Dosage: UNK
     Dates: start: 201204, end: 201508
  24. ALENDRONATE SODIUM [Concomitant]
     Active Substance: ALENDRONATE SODIUM
     Indication: Osteoporosis
     Dosage: UNK
     Dates: start: 2009, end: 2013
  25. AMOXICILLIN [Concomitant]
     Active Substance: AMOXICILLIN
     Indication: Dental operation
     Dosage: UNK
     Dates: start: 20080220
  26. AMOXICILLIN [Concomitant]
     Active Substance: AMOXICILLIN
     Indication: Infection
     Dosage: UNK
     Dates: start: 20130110
  27. AMOXICILLIN [Concomitant]
     Active Substance: AMOXICILLIN
     Dosage: UNK
     Dates: start: 20171108
  28. AMOXICILLIN [Concomitant]
     Active Substance: AMOXICILLIN
     Dosage: UNK
     Dates: start: 2020, end: 2022
  29. AMOXICILLIN [Concomitant]
     Active Substance: AMOXICILLIN
     Dosage: UNK
     Dates: start: 20150409
  30. ATORVASTATIN [Concomitant]
     Active Substance: ATORVASTATIN
     Indication: Blood cholesterol abnormal
     Dosage: UNK
     Dates: start: 20140922
  31. AZITHROMYCIN [Concomitant]
     Active Substance: AZITHROMYCIN
     Indication: Sinusitis
     Dosage: UNK
     Dates: start: 20160118
  32. CLONAZEPAM [Concomitant]
     Active Substance: CLONAZEPAM
     Indication: Nightmare
     Dosage: UNK
  33. CYMBALTA [Concomitant]
     Active Substance: DULOXETINE HYDROCHLORIDE
     Indication: Anxiety
     Dosage: UNK
  34. DULOXETINE [Concomitant]
     Active Substance: DULOXETINE
     Indication: Anxiety
     Dosage: UNK
  35. DULOXETINE [Concomitant]
     Active Substance: DULOXETINE
     Indication: Depression
  36. DULOXETINE [Concomitant]
     Active Substance: DULOXETINE
     Indication: Diabetic neuropathy
  37. DULOXETINE [Concomitant]
     Active Substance: DULOXETINE
     Indication: Fibromyalgia
  38. DULOXETINE [Concomitant]
     Active Substance: DULOXETINE
     Indication: Myalgia
  39. DULOXETINE [Concomitant]
     Active Substance: DULOXETINE
     Indication: Bone pain
  40. FERROUS SULFATE [Concomitant]
     Active Substance: FERROUS SULFATE
     Indication: Iron deficiency
     Dosage: UNK
     Dates: start: 20150319
  41. FERROUS SULFATE [Concomitant]
     Active Substance: FERROUS SULFATE
     Dosage: UNK
     Dates: start: 20171128
  42. HYDROCHLOROTHIAZIDE [Concomitant]
     Active Substance: HYDROCHLOROTHIAZIDE
     Indication: Blood pressure abnormal
     Dosage: UNK
     Dates: start: 20080111
  43. HYDROCHLOROTHIAZIDE [Concomitant]
     Active Substance: HYDROCHLOROTHIAZIDE
     Dosage: UNK
     Dates: start: 20080126
  44. HYDROCHLOROTHIAZIDE [Concomitant]
     Active Substance: HYDROCHLOROTHIAZIDE
     Dosage: UNK
     Dates: start: 20080302
  45. HYDROCODONE [Concomitant]
     Active Substance: HYDROCODONE
     Indication: Pain
     Dosage: UNK
     Dates: start: 20171118, end: 20171128
  46. ACETAMINOPHEN [Concomitant]
     Active Substance: ACETAMINOPHEN
     Indication: Pain
     Dosage: UNK
     Dates: start: 20171118, end: 20171128
  47. BUSPIRONE [Concomitant]
     Active Substance: BUSPIRONE HYDROCHLORIDE
     Indication: Anxiety
     Dosage: UNK
     Dates: start: 2022
  48. DICLOFENAC SODIUM [Concomitant]
     Active Substance: DICLOFENAC SODIUM
     Indication: Osteoarthritis
     Dosage: UNK
     Dates: start: 2019
  49. LISINOPRIL [Concomitant]
     Active Substance: LISINOPRIL
     Indication: Hypertension
     Dosage: UNK
  50. LISINOPRIL [Concomitant]
     Active Substance: LISINOPRIL
     Indication: Cardiac failure
  51. PREGABALIN [Concomitant]
     Active Substance: PREGABALIN
     Indication: Neuralgia
     Dosage: UNK
  52. PREGABALIN [Concomitant]
     Active Substance: PREGABALIN
     Indication: Myalgia
  53. PREGABALIN [Concomitant]
     Active Substance: PREGABALIN
     Indication: Fibromyalgia
  54. SOLIFENACIN [Concomitant]
     Active Substance: SOLIFENACIN
     Indication: Hypertonic bladder
     Dosage: UNK
     Dates: start: 2022
  55. TRAMADOL [Concomitant]
     Active Substance: TRAMADOL
     Indication: Pain
     Dosage: UNK
  56. FLUOROURACIL [Concomitant]
     Active Substance: FLUOROURACIL
     Indication: Actinic keratosis
     Dosage: UNK
     Dates: start: 2018
  57. BACTRIM DS [Concomitant]
     Active Substance: SULFAMETHOXAZOLE\TRIMETHOPRIM
     Indication: Infection
     Dosage: UNK
     Dates: start: 2021
  58. CEPHALEXIN [Concomitant]
     Active Substance: CEPHALEXIN
     Indication: Infection
     Dosage: UNK
     Dates: start: 2019
  59. METHYLPREDNISOLONE [Concomitant]
     Active Substance: METHYLPREDNISOLONE
     Indication: Inflammation
     Dosage: UNK
     Dates: start: 2019
  60. METHYLPREDNISOLONE [Concomitant]
     Active Substance: METHYLPREDNISOLONE
     Indication: Arthritis
  61. METHYLPREDNISOLONE [Concomitant]
     Active Substance: METHYLPREDNISOLONE
     Indication: Blood disorder
  62. METHYLPREDNISOLONE [Concomitant]
     Active Substance: METHYLPREDNISOLONE
     Indication: Hypersensitivity
  63. METHYLPREDNISOLONE [Concomitant]
     Active Substance: METHYLPREDNISOLONE
     Indication: Neoplasm malignant
  64. METHYLPREDNISOLONE [Concomitant]
     Active Substance: METHYLPREDNISOLONE
     Indication: Eye disorder
  65. ACIDOPHILUS [Concomitant]
     Active Substance: LACTOBACILLUS ACIDOPHILUS
     Indication: Gastrointestinal disorder prophylaxis
     Dosage: UNK
  66. VITAMIN D3 [Concomitant]
     Active Substance: CHOLECALCIFEROL
     Indication: Vitamin D deficiency
     Dosage: UNK
  67. MAGNESIUM CITRATE [Concomitant]
     Active Substance: MAGNESIUM CITRATE
     Indication: Muscle spasms
     Dosage: UNK
  68. FAMOTIDINE [Concomitant]
     Active Substance: FAMOTIDINE
     Dosage: UNK
     Dates: start: 202004
  69. RANITIDINE [Concomitant]
     Active Substance: RANITIDINE
     Dosage: UNK
     Dates: start: 2014, end: 2019
  70. ACETAMINOPHEN\HYDROCODONE [Concomitant]
     Active Substance: ACETAMINOPHEN\HYDROCODONE
     Indication: Procedural pain
     Dosage: UNK
     Dates: start: 2020

REACTIONS (2)
  - Renal impairment [Not Recovered/Not Resolved]
  - Chronic kidney disease [Not Recovered/Not Resolved]

NARRATIVE: CASE EVENT DATE: 20150301
